FAERS Safety Report 20699635 (Version 2)
Quarter: 2022Q2

REPORT INFORMATION
  Report Type: Report from Study
  Country: CA (occurrence: CA)
  Receive Date: 20220412
  Receipt Date: 20220516
  Transmission Date: 20220720
  Serious: Yes (Other)
  Sender: FDA-Public Use
  Company Number: CA-GLAXOSMITHKLINE-CA2021237382

PATIENT

DRUGS (2)
  1. MEPOLIZUMAB [Suspect]
     Active Substance: MEPOLIZUMAB
     Indication: Asthma
     Dosage: 100 MG, Z, EVERY 4 WEEKS
     Route: 058
     Dates: start: 20190910
  2. MEPOLIZUMAB [Suspect]
     Active Substance: MEPOLIZUMAB
     Dosage: 100 MG, Z, EVERY 4 WEEKS
     Route: 058

REACTIONS (9)
  - Cataract [Unknown]
  - Hypertension [Unknown]
  - Ocular hyperaemia [Recovered/Resolved]
  - Dizziness [Not Recovered/Not Resolved]
  - Nausea [Unknown]
  - Arthritis [Unknown]
  - Arthralgia [Unknown]
  - Balance disorder [Unknown]
  - Gait disturbance [Unknown]

NARRATIVE: CASE EVENT DATE: 20220303
